FAERS Safety Report 25368553 (Version 1)
Quarter: 2025Q2

REPORT INFORMATION
  Report Type: Spontaneous
  Country: US (occurrence: None)
  Receive Date: 20250527
  Receipt Date: 20250527
  Transmission Date: 20250717
  Serious: Yes (Death)
  Sender: FDA-CTU
  Company Number: None

PATIENT
  Age: 25 Year
  Sex: Male
  Weight: 67.3 kg

DRUGS (2)
  1. ELEVIDYS [Suspect]
     Active Substance: DELANDISTROGENE MOXEPARVOVEC-ROKL
     Indication: Duchenne muscular dystrophy
     Route: 042
     Dates: start: 20250409, end: 20250409
  2. PREDNISONE [Suspect]
     Active Substance: PREDNISONE
     Indication: Gene therapy
     Dosage: 60 MG DAILY ORAL
     Route: 048
     Dates: start: 20250402, end: 20250512

REACTIONS (7)
  - Infectious pleural effusion [None]
  - Pneumonia bacterial [None]
  - Respiratory failure [None]
  - Pneumothorax [None]
  - Cardiac arrest [None]
  - Ventricular fibrillation [None]
  - Unresponsive to stimuli [None]

NARRATIVE: CASE EVENT DATE: 20250512
